FAERS Safety Report 25085211 (Version 1)
Quarter: 2025Q1

REPORT INFORMATION
  Report Type: Spontaneous
  Country: CN (occurrence: CN)
  Receive Date: 20250317
  Receipt Date: 20250317
  Transmission Date: 20250409
  Serious: Yes (Hospitalization)
  Sender: PAREXEL
  Company Number: CN-SHANGHAI JUNSHI BIOSCIENCES CO., LTD.-CN2025013354

PATIENT

DRUGS (20)
  1. TORIPALIMAB [Suspect]
     Active Substance: TORIPALIMAB
     Indication: Invasive breast carcinoma
  2. TORIPALIMAB [Suspect]
     Active Substance: TORIPALIMAB
     Dosage: 240 MG (D8, Q21D), ADMINISTER FOR 2 CYCLE
     Route: 041
     Dates: start: 20250203
  3. PACLITAXEL [Suspect]
     Active Substance: PACLITAXEL
     Indication: Invasive breast carcinoma
     Dosage: 200 MG (D1?D8), 21 DAYS AS A CYCLE, ADMINISTER FOR 2 CYCLE
     Route: 041
     Dates: start: 20241117
  4. PACLITAXEL [Suspect]
     Active Substance: PACLITAXEL
  5. PACLITAXEL [Suspect]
     Active Substance: PACLITAXEL
     Dosage: 200 MG (D1?D8), 21 DAYS AS A CYCLE
     Route: 041
     Dates: start: 20250203, end: 20250210
  6. PACLITAXEL [Suspect]
     Active Substance: PACLITAXEL
     Dosage: 200 MG (D1?D8), 21 DAYS AS A CYCLE
     Route: 041
     Dates: start: 20250224
  7. CARBOPLATIN [Suspect]
     Active Substance: CARBOPLATIN
     Indication: Invasive breast carcinoma
     Dosage: 300 MG (D1?D8), 21 DAYS AS A CYCLE, ADMINISTER FOR 2 CYCLE
     Route: 041
     Dates: start: 20241117
  8. CARBOPLATIN [Suspect]
     Active Substance: CARBOPLATIN
  9. CARBOPLATIN [Suspect]
     Active Substance: CARBOPLATIN
     Dosage: 300 MG (D1?D8), 21 DAYS AS A CYCLE
     Route: 041
     Dates: start: 20250203, end: 20250210
  10. CARBOPLATIN [Suspect]
     Active Substance: CARBOPLATIN
     Dosage: 400MG (D1), 300MG (D8), 21 DAYS AS A CYCLE
     Route: 041
     Dates: start: 20250224
  11. SODIUM CHLORIDE [Concomitant]
     Active Substance: SODIUM CHLORIDE
     Indication: Medication dilution
     Dosage: 40 ML (D1?D8), 21 DAYS AS A CYCLE,ADMINISTER FOR 2 CYCLE
     Route: 041
     Dates: start: 20241117
  12. SODIUM CHLORIDE [Concomitant]
     Active Substance: SODIUM CHLORIDE
  13. SODIUM CHLORIDE [Concomitant]
     Active Substance: SODIUM CHLORIDE
     Dosage: 40 ML (D1?D8), 21 DAYS AS A CYCLE
     Route: 041
     Dates: start: 20250203, end: 20250210
  14. SODIUM CHLORIDE [Concomitant]
     Active Substance: SODIUM CHLORIDE
     Dosage: 100 ML (D8), 21 DAYS AS A CYCLE
     Route: 041
     Dates: start: 20250203, end: 20250203
  15. SODIUM CHLORIDE [Concomitant]
     Active Substance: SODIUM CHLORIDE
     Dosage: 40 ML (D1?D8), 21 DAYS AS A CYCLE
     Route: 041
     Dates: start: 20250224
  16. SODIUM CHLORIDE [Concomitant]
     Active Substance: SODIUM CHLORIDE
     Dosage: 100 ML (D8), 21 DAYS AS A CYCLE
     Route: 041
     Dates: start: 20250224
  17. DEXTROSE [Concomitant]
     Active Substance: DEXTROSE MONOHYDRATE
     Indication: Medication dilution
     Dosage: 500 ML (D1?D8), 21 DAYS AS A CYCLE, ADMINISTER FOR 2 CYCLE
     Route: 041
     Dates: start: 20241117
  18. DEXTROSE [Concomitant]
     Active Substance: DEXTROSE MONOHYDRATE
  19. DEXTROSE [Concomitant]
     Active Substance: DEXTROSE MONOHYDRATE
     Dosage: 500 ML (D1?D8), 21 DAYS AS A CYCLE
     Route: 041
     Dates: start: 20250203, end: 20250210
  20. DEXTROSE [Concomitant]
     Active Substance: DEXTROSE MONOHYDRATE
     Dosage: 500 ML (D1?D8), 21 DAYS AS A CYCLE
     Route: 041
     Dates: start: 20250224

REACTIONS (1)
  - Myelosuppression [Recovering/Resolving]

NARRATIVE: CASE EVENT DATE: 20250224
